FAERS Safety Report 10786699 (Version 1)
Quarter: 2015Q1

REPORT INFORMATION
  Report Type: Spontaneous
  Country: ZA (occurrence: ZA)
  Receive Date: 20150211
  Receipt Date: 20150211
  Transmission Date: 20150721
  Serious: Yes (Hospitalization)
  Sender: FDA-Public Use
  Company Number: ZA-PFIZER INC-2015049297

PATIENT
  Age: 41 Year
  Sex: Female

DRUGS (5)
  1. ASPAVOR [Suspect]
     Active Substance: ATORVASTATIN
     Indication: BLOOD CHOLESTEROL INCREASED
     Dosage: 20 MG, UNK
     Route: 048
     Dates: start: 201304
  2. ROBAXIN [Concomitant]
     Active Substance: METHOCARBAMOL
     Indication: MYALGIA
     Dosage: 500 MG, UNK
     Route: 048
     Dates: start: 201311
  3. TRAMAZAC CO [Concomitant]
     Indication: PAIN
     Dosage: 37.5/325MG, UNK
     Route: 048
     Dates: start: 201407
  4. TAREG [Concomitant]
     Active Substance: VALSARTAN
     Indication: HYPERTENSION
     Dosage: 160 MG, DAILY
     Route: 048
     Dates: start: 2012
  5. CELEBREX [Concomitant]
     Active Substance: CELECOXIB
     Indication: ARTHRITIS
     Dosage: UNK
     Route: 048
     Dates: start: 201501

REACTIONS (1)
  - Endometriosis [Recovering/Resolving]

NARRATIVE: CASE EVENT DATE: 20150128
